FAERS Safety Report 20417225 (Version 1)
Quarter: 2022Q1

REPORT INFORMATION
  Report Type: Spontaneous
  Country: US (occurrence: None)
  Receive Date: 20220202
  Receipt Date: 20220202
  Transmission Date: 20220424
  Serious: Yes (Hospitalization)
  Sender: FDA-Public Use
  Company Number: None

PATIENT
  Age: 43 Year
  Sex: Female
  Weight: 43.9 kg

DRUGS (10)
  1. GAZYVA [Suspect]
     Active Substance: OBINUTUZUMAB
     Indication: Central nervous system lymphoma
     Dosage: OTHER FREQUENCY : C1D1 AND C1D2;?
     Route: 041
     Dates: start: 20211001, end: 20211002
  2. ALLOPURINOL [Concomitant]
     Active Substance: ALLOPURINOL
     Dates: start: 20211001
  3. ACETAMINOPHEN [Concomitant]
     Active Substance: ACETAMINOPHEN
     Dates: start: 20211001
  4. DIPHENHYDRAMINE [Concomitant]
     Active Substance: DIPHENHYDRAMINE
     Dates: start: 20211001
  5. PREDNISONE [Concomitant]
     Active Substance: PREDNISONE
     Dates: start: 20211001
  6. IBRUTINIB [Concomitant]
     Active Substance: IBRUTINIB
     Dates: start: 20211001
  7. LENALIDOMIDE [Concomitant]
     Active Substance: LENALIDOMIDE
     Dates: start: 20211001
  8. VALACYCLOVIR [Concomitant]
     Active Substance: VALACYCLOVIR HYDROCHLORIDE
     Dates: start: 20211001
  9. MAGNESIUM SULFATE [Concomitant]
     Active Substance: MAGNESIUM SULFATE
     Dates: start: 20211001
  10. POTASSIUM CHLORIDE [Concomitant]
     Active Substance: POTASSIUM CHLORIDE
     Dates: start: 20211001

REACTIONS (4)
  - Infusion related reaction [None]
  - Nausea [None]
  - Vomiting [None]
  - Hypotension [None]

NARRATIVE: CASE EVENT DATE: 20211014
